FAERS Safety Report 8880737 (Version 1)
Quarter: 2012Q4

REPORT INFORMATION
  Report Type: 
  Country: US (occurrence: US)
  Receive Date: 20121101
  Receipt Date: 20121101
  Transmission Date: 20130627
  Serious: Yes (Hospitalization)
  Sender: FDA-Public Use
  Company Number: US-GLAXOSMITHKLINE-A0999493A

PATIENT
  Age: 55 Year
  Sex: Female
  Weight: 63.6 kg

DRUGS (3)
  1. IMITREX [Suspect]
     Indication: MIGRAINE
     Route: 065
     Dates: start: 201011, end: 201011
  2. RELPAX [Suspect]
     Indication: MIGRAINE
     Dosage: 40MG As required
     Route: 048
     Dates: start: 2005, end: 201209
  3. NO CONCURRENT MEDICATIONS [Concomitant]

REACTIONS (3)
  - Anxiety [Unknown]
  - Stress [Unknown]
  - Drug ineffective [Unknown]
